FAERS Safety Report 9038798 (Version 1)
Quarter: 2013Q1

REPORT INFORMATION
  Report Type: Spontaneous
  Country: US (occurrence: None)
  Receive Date: 20130122
  Receipt Date: 20130122
  Transmission Date: 20140127
  Serious: Yes (Other)
  Sender: FDA-Public Use
  Company Number: None

PATIENT
  Age: 52 Year
  Sex: Male
  Weight: 57.61 kg

DRUGS (1)
  1. RIBAVARIN [Suspect]
     Indication: HEPATITIS C
     Dosage: 600MG BY MOUTH IN THE MORNING AND 400 BY MOUTH IN THE EVENING
     Route: 048

REACTIONS (1)
  - Red blood cell count decreased [None]
